FAERS Safety Report 22956291 (Version 3)
Quarter: 2023Q4

REPORT INFORMATION
  Report Type: Report from Study
  Country: RU (occurrence: None)
  Receive Date: 20230919
  Receipt Date: 20231027
  Transmission Date: 20240109
  Serious: Yes (Hospitalization)
  Sender: FDA-Public Use
  Company Number: RU-ROCHE-3422717

PATIENT
  Age: 74 Year
  Sex: Male

DRUGS (16)
  1. FARICIMAB [Suspect]
     Active Substance: FARICIMAB
     Indication: Neovascular age-related macular degeneration
     Dosage: ON 15/MAY/2023 AT 11:11 AM, HE RECEIVED MOST RECENT DOSE 6 MG OF FARICIMAB PRIOR TO SAE.
     Route: 050
     Dates: start: 20211108
  2. BISOPROLOL FUMARATE [Concomitant]
     Active Substance: BISOPROLOL FUMARATE
     Indication: Hypertension
     Route: 048
     Dates: start: 2004
  3. CARDIOMAGNYL [Concomitant]
     Active Substance: ASPIRIN\MAGNESIUM HYDROXIDE
     Indication: Hypertension
     Route: 048
     Dates: start: 2004
  4. ATORVASTATIN [Concomitant]
     Active Substance: ATORVASTATIN
     Indication: Hypertension
     Route: 048
     Dates: start: 2004
  5. BRIMONIDINE TARTRATE [Concomitant]
     Active Substance: BRIMONIDINE TARTRATE
     Indication: Glaucoma
     Route: 047
  6. AZARGA [Concomitant]
     Active Substance: BRINZOLAMIDE\TIMOLOL MALEATE
     Indication: Glaucoma
     Route: 047
  7. TAFLUPROST [Concomitant]
     Active Substance: TAFLUPROST
     Indication: Glaucoma
     Route: 047
     Dates: start: 20221109
  8. MOXONIDINE [Concomitant]
     Active Substance: MOXONIDINE
     Indication: Angina pectoris
     Route: 048
     Dates: start: 20191104
  9. PERINDOPRIL [Concomitant]
     Active Substance: PERINDOPRIL
     Indication: Hypertension
     Route: 048
     Dates: start: 20210813
  10. INDAPAMIDE [Concomitant]
     Active Substance: INDAPAMIDE
     Indication: Hypertension
     Route: 048
     Dates: start: 20211101
  11. AMLODIPINE [Concomitant]
     Active Substance: AMLODIPINE BESYLATE
     Indication: Hypertension
     Route: 048
     Dates: start: 20211101
  12. OMEPRAZOLE [Concomitant]
     Active Substance: OMEPRAZOLE
     Indication: Peptic ulcer
     Route: 048
     Dates: start: 20211101
  13. COSOPT [Concomitant]
     Active Substance: DORZOLAMIDE HYDROCHLORIDE\TIMOLOL MALEATE
     Indication: Glaucoma
     Route: 047
     Dates: start: 20221109
  14. OFTAN DEXAMETHASON [Concomitant]
     Indication: Choroidal detachment
     Route: 047
     Dates: start: 20230203
  15. BROXINAC [Concomitant]
     Indication: Choroidal detachment
     Route: 047
     Dates: start: 20230203
  16. MYDRIMAX [Concomitant]
     Indication: Choroidal detachment
     Route: 047
     Dates: start: 20230203

REACTIONS (1)
  - Vertebrobasilar insufficiency [Recovered/Resolved]

NARRATIVE: CASE EVENT DATE: 20230713
